FAERS Safety Report 10028949 (Version 15)
Quarter: 2015Q3

REPORT INFORMATION
  Report Type: Report from Study
  Country: AU (occurrence: AU)
  Receive Date: 20140321
  Receipt Date: 20150806
  Transmission Date: 20151125
  Serious: Yes (Other)
  Sender: FDA-Public Use
  Company Number: PHHY2014AU034525

PATIENT
  Age: 30 Year
  Sex: Male

DRUGS (8)
  1. VIREAD [Concomitant]
     Active Substance: TENOFOVIR DISOPROXIL FUMARATE
     Indication: HEPATITIS B
     Dosage: 300 MG, (MANE)
     Route: 048
  2. OMEPRAZOLE. [Concomitant]
     Active Substance: OMEPRAZOLE
     Indication: GASTROOESOPHAGEAL REFLUX DISEASE
     Dosage: 20 MG, (MANE)
     Route: 048
  3. PARACETAMOL [Concomitant]
     Active Substance: ACETAMINOPHEN
     Indication: PAIN
     Dosage: 2 DF, QID (2 STAT)
     Route: 048
  4. PANAFCORTELONE [Concomitant]
     Active Substance: PREDNISOLONE
     Indication: PAIN
     Dosage: 3 DF, MANE
     Route: 048
  5. CLOZARIL [Suspect]
     Active Substance: CLOZAPINE
     Indication: SCHIZOPHRENIA, PARANOID TYPE
     Dosage: 300 OT, QD
     Route: 048
     Dates: start: 20051109
  6. CLOZARIL [Suspect]
     Active Substance: CLOZAPINE
     Indication: SCHIZOPHRENIA
  7. AMISULPRIDE [Concomitant]
     Active Substance: AMISULPRIDE
     Dosage: 600 MG, QD
     Route: 048
  8. AMISULPRIDE [Concomitant]
     Active Substance: AMISULPRIDE
     Indication: SCHIZOPHRENIA, PARANOID TYPE
     Dosage: 1200 MG, BID
     Route: 048

REACTIONS (6)
  - Leukocytosis [Not Recovered/Not Resolved]
  - Hepatitis C [Unknown]
  - Anaemia [Unknown]
  - Still^s disease adult onset [Unknown]
  - Inflammation [Not Recovered/Not Resolved]
  - Neutrophilia [Not Recovered/Not Resolved]

NARRATIVE: CASE EVENT DATE: 20130220
